FAERS Safety Report 4618963-8 (Version None)
Quarter: 2005Q1

REPORT INFORMATION
  Report Type: 
  Country: None (occurrence: None)
  Receive Date: 20050325
  Receipt Date: 20050314
  Transmission Date: 20050727
  Serious: Yes (Other)
  Sender: FDA-Public Use
  Company Number: US-JNJFOC-20041105877

PATIENT
  Sex: Female
  Weight: 56.7 kg

DRUGS (5)
  1. REMICADE [Suspect]
     Route: 042
  2. REMICADE [Suspect]
     Indication: CROHN'S DISEASE
     Route: 042
  3. ENTOCORT [Concomitant]
  4. PROTONIX [Concomitant]
  5. COLESTID [Concomitant]
     Dosage: 1-2 PER DAY

REACTIONS (2)
  - INFECTION [None]
  - LYMPHADENOPATHY [None]
